FAERS Safety Report 5631154-7 (Version None)
Quarter: 2008Q1

REPORT INFORMATION
  Report Type: 
  Country: None (occurrence: None)
  Receive Date: 20080219
  Receipt Date: 20080208
  Transmission Date: 20080703
  Serious: No
  Sender: FDA-Public Use
  Company Number: US-BOEHRINGER INGELHEIM GMBH, GERMANY-2008-BP-02000BP

PATIENT
  Age: 76 Year
  Sex: Male

DRUGS (6)
  1. FLOMAX [Suspect]
     Indication: BENIGN PROSTATIC HYPERPLASIA
     Route: 048
     Dates: start: 20070801
  2. TOPROL [Concomitant]
  3. LOTREL [Concomitant]
  4. ASPIRIN [Concomitant]
  5. DOXAZOSIN [Concomitant]
  6. ALDACTAZIDE [Concomitant]

REACTIONS (1)
  - NIPPLE PAIN [None]
